FAERS Safety Report 7810693-4 (Version None)
Quarter: 2011Q4

REPORT INFORMATION
  Report Type: 
  Country: None (occurrence: None)
  Receive Date: 20111013
  Receipt Date: 20110930
  Transmission Date: 20120403
  Serious: Yes (Life-Threatening, Hospitalization, Other)
  Sender: FDA-Public Use
  Company Number: DE-AMGEN-DEUSP2011044844

PATIENT
  Age: 63 Year
  Sex: Male
  Weight: 75 kg

DRUGS (1)
  1. ENBREL [Suspect]
     Indication: PSORIATIC ARTHROPATHY
     Dosage: 50 MG, WEEKLY
     Route: 058
     Dates: end: 20110627

REACTIONS (12)
  - HEPATOSPLENOMEGALY [None]
  - HEPATIC CYST [None]
  - HEPATIC STEATOSIS [None]
  - ADRENAL NEOPLASM [None]
  - SEPSIS [None]
  - ABDOMINAL PAIN UPPER [None]
  - SUBDIAPHRAGMATIC ABSCESS [None]
  - GENERAL PHYSICAL HEALTH DETERIORATION [None]
  - SKIN DISORDER [None]
  - ABSCESS [None]
  - ASTHENIA [None]
  - CHOLELITHIASIS [None]
